FAERS Safety Report 14938064 (Version 1)
Quarter: 2018Q2

REPORT INFORMATION
  Report Type: Spontaneous
  Country: JP (occurrence: JP)
  Receive Date: 20180525
  Receipt Date: 20180525
  Transmission Date: 20180711
  Serious: Yes (Death, Other)
  Sender: FDA-Public Use
  Company Number: JP-BAYER-2018-096721

PATIENT
  Age: 74 Year
  Sex: Male

DRUGS (2)
  1. BAYASPIRIN 100 MG [Suspect]
     Active Substance: ASPIRIN
     Indication: ANGINA PECTORIS
     Dosage: UNK
     Route: 048
  2. BAYASPIRIN 100 MG [Suspect]
     Active Substance: ASPIRIN
     Indication: THROMBOSIS

REACTIONS (9)
  - Mydriasis [None]
  - Depressed level of consciousness [None]
  - Fall [None]
  - Cerebral infarction [Fatal]
  - Respiratory arrest [None]
  - Hemiplegia [Fatal]
  - Eye movement disorder [Fatal]
  - Atrial fibrillation [None]
  - Dyslalia [Fatal]
